FAERS Safety Report 15993383 (Version 2)
Quarter: 2019Q2

REPORT INFORMATION
  Report Type: Spontaneous
  Country: CN (occurrence: CN)
  Receive Date: 20190222
  Receipt Date: 20190408
  Transmission Date: 20190711
  Serious: Yes (Other)
  Sender: FDA-Public Use
  Company Number: PHHY2019CN040690

PATIENT

DRUGS (1)
  1. GLIVEC [Suspect]
     Active Substance: IMATINIB MESYLATE
     Indication: MALIGNANT MESENCHYMOMA
     Dosage: 4 DF, QD
     Route: 048

REACTIONS (4)
  - White blood cell count decreased [Recovering/Resolving]
  - Transaminases increased [Unknown]
  - Product use in unapproved indication [Unknown]
  - Neutrophil count decreased [Unknown]
